FAERS Safety Report 9308690 (Version 1)
Quarter: 2013Q2

REPORT INFORMATION
  Report Type: Spontaneous
  Country: US (occurrence: US)
  Receive Date: 20130524
  Receipt Date: 20130524
  Transmission Date: 20140414
  Serious: No
  Sender: FDA-Public Use
  Company Number: US-NOVEN-13US006524

PATIENT
  Age: 61 Year
  Sex: Female
  Weight: 64.85 kg

DRUGS (2)
  1. MINIVELLE [Suspect]
     Indication: HORMONE REPLACEMENT THERAPY
     Dosage: 0.075 MG, 2/WK
     Route: 062
     Dates: start: 20130226, end: 20130322
  2. SYNTHROID [Concomitant]
     Dosage: UNK

REACTIONS (4)
  - Angina unstable [Recovered/Resolved]
  - Headache [Recovered/Resolved]
  - Limb discomfort [Recovered/Resolved]
  - Off label use [Recovered/Resolved]
